FAERS Safety Report 9865217 (Version 1)
Quarter: 2014Q1

REPORT INFORMATION
  Report Type: Spontaneous
  Country: PR (occurrence: US)
  Receive Date: 20140203
  Receipt Date: 20140203
  Transmission Date: 20141002
  Serious: No
  Sender: FDA-Public Use
  Company Number: US-ALLERGAN-1304708US

PATIENT
  Sex: Male

DRUGS (6)
  1. RESTASIS [Suspect]
     Indication: EYE INFECTION
     Dosage: UNK
     Route: 047
     Dates: start: 20130301, end: 20130305
  2. RESTASIS [Suspect]
     Indication: DRY EYE
     Dosage: UNK
     Route: 047
     Dates: start: 20130327
  3. REFRESH OPTIVE [Concomitant]
     Indication: DRY EYE
     Dosage: 1 DROP IN EACH EYE AS NEEDED
     Route: 047
     Dates: start: 20130301
  4. ABILIFY [Concomitant]
     Indication: MENTAL DISORDER
     Dosage: UNK
     Dates: start: 2012
  5. LAMICTAL [Concomitant]
     Indication: MENTAL DISORDER
     Dosage: UNK
     Dates: start: 2011
  6. SIMVASTATIN [Concomitant]
     Indication: BLOOD CHOLESTEROL INCREASED
     Dosage: UNK
     Dates: start: 2010

REACTIONS (4)
  - Headache [Not Recovered/Not Resolved]
  - Eye irritation [Not Recovered/Not Resolved]
  - Vision blurred [Not Recovered/Not Resolved]
  - Ocular hyperaemia [Not Recovered/Not Resolved]
